FAERS Safety Report 5587876-X (Version None)
Quarter: 2008Q1

REPORT INFORMATION
  Report Type: 
  Country: None (occurrence: None)
  Receive Date: 20080111
  Receipt Date: 20080110
  Transmission Date: 20080703
  Serious: Yes (Hospitalization)
  Sender: FDA-Public Use
  Company Number: US-BRISTOL-MYERS SQUIBB COMPANY-14036511

PATIENT
  Age: 85 Year
  Sex: Male
  Weight: 73 kg

DRUGS (3)
  1. PACLITAXEL [Suspect]
     Indication: NON-SMALL CELL LUNG CANCER
     Dosage: TOTAL DOSE OF 398 MG.
     Route: 042
     Dates: start: 20071130
  2. CARBOPLATIN [Suspect]
     Indication: NON-SMALL CELL LUNG CANCER
     Dosage: 1 DF=AUC 6, TOTAL DOSE OF 517 MG.
     Route: 042
     Dates: start: 20071130
  3. CP-751,871 [Suspect]
     Indication: NON-SMALL CELL LUNG CANCER
     Dosage: TOTAL DOSE OF 1600 MG.
     Route: 042
     Dates: start: 20071130

REACTIONS (2)
  - MENTAL STATUS CHANGES [None]
  - MUCOSAL INFLAMMATION [None]
